FAERS Safety Report 5286731-2 (Version None)
Quarter: 2007Q1

REPORT INFORMATION
  Report Type: 
  Country: None (occurrence: None)
  Receive Date: 20070329
  Receipt Date: 20070308
  Transmission Date: 20070707
  Serious: Yes (Other)
  Sender: FDA-Public Use
  Company Number: 6030919

PATIENT
  Age: 55 Year
  Sex: Male

DRUGS (3)
  1. CIPROFLOXACIN [Suspect]
     Dosage: 1500 MG ORAL
     Route: 048
  2. CEPHALEXIN [Concomitant]
  3. OPOID ANALGEGESICS [Concomitant]

REACTIONS (7)
  - AMBLYOPIA [None]
  - ANAEMIA MACROCYTIC [None]
  - CONGENITAL EYE NAEVUS [None]
  - GAMMA-GLUTAMYLTRANSFERASE INCREASED [None]
  - OPTIC ATROPHY [None]
  - OPTIC NEUROPATHY [None]
  - SCOTOMA [None]
